FAERS Safety Report 20644146 (Version 1)
Quarter: 2022Q1

REPORT INFORMATION
  Report Type: Spontaneous
  Country: US (occurrence: None)
  Receive Date: 20220325
  Receipt Date: 20220325
  Transmission Date: 20220423
  Serious: Yes (Disabling)
  Sender: FDA-Public Use
  Company Number: None

PATIENT
  Age: 80 Year
  Sex: Male
  Weight: 72.57 kg

DRUGS (3)
  1. LUPRON [Suspect]
     Active Substance: LEUPROLIDE ACETATE
     Indication: Prostatic specific antigen increased
     Dates: start: 20220119
  2. metformimg [Concomitant]
  3. GLIMEPIRIDE [Concomitant]
     Active Substance: GLIMEPIRIDE

REACTIONS (5)
  - Blood glucose increased [None]
  - Hot flush [None]
  - Night sweats [None]
  - Rash pruritic [None]
  - Libido decreased [None]

NARRATIVE: CASE EVENT DATE: 20220119
